FAERS Safety Report 24952489 (Version 4)
Quarter: 2025Q1

REPORT INFORMATION
  Report Type: Report from Study
  Country: DE (occurrence: DE)
  Receive Date: 20250210
  Receipt Date: 20250314
  Transmission Date: 20250408
  Serious: Yes (Death, Hospitalization, Other)
  Sender: ABBVIE
  Company Number: DE-ABBVIE-6127838

PATIENT
  Age: 75 Year
  Sex: Male

DRUGS (2)
  1. CARBIDOPA\LEVODOPA [Suspect]
     Active Substance: CARBIDOPA\LEVODOPA
     Indication: Parkinson^s disease
     Route: 050
     Dates: start: 20220512, end: 20250119
  2. CARBIDOPA\LEVODOPA [Suspect]
     Active Substance: CARBIDOPA\LEVODOPA

REACTIONS (6)
  - Death [Fatal]
  - Oedema peripheral [Unknown]
  - Catheterisation cardiac [Unknown]
  - Haematotoxicity [Unknown]
  - Gastric haemorrhage [Unknown]
  - Discoloured vomit [Unknown]

NARRATIVE: CASE EVENT DATE: 20250119
